FAERS Safety Report 5017506-7 (Version None)
Quarter: 2006Q2

REPORT INFORMATION
  Report Type: 
  Country: None (occurrence: None)
  Receive Date: 20060601
  Receipt Date: 20060601
  Transmission Date: 20061013
  Serious: Yes (Life-Threatening, Hospitalization)
  Sender: FDA-Public Use
  Company Number: None

PATIENT
  Age: 73 Year
  Sex: Male
  Weight: 58.5 kg

DRUGS (1)
  1. PHENYTOIN [Suspect]

REACTIONS (4)
  - ASTHENIA [None]
  - DRUG TOXICITY [None]
  - NAUSEA [None]
  - VOMITING [None]
